FAERS Safety Report 4351164-X (Version None)
Quarter: 2004Q2

REPORT INFORMATION
  Report Type: 
  Country: None (occurrence: None)
  Receive Date: 20040428
  Receipt Date: 20040114
  Transmission Date: 20050107
  Serious: Yes (Hospitalization)
  Sender: FDA-Public Use
  Company Number: US-JNJFOC-20040102726

PATIENT
  Age: 66 Year
  Sex: Male
  Weight: 108.8633 kg

DRUGS (6)
  1. ULTRAM [Suspect]
     Indication: DIABETIC NEUROPATHY
     Dosage: ORAL
     Route: 048
     Dates: start: 20000101
  2. ZOCOR [Concomitant]
  3. ZESTRIL [Concomitant]
  4. ACE INHIBITOR (ACE INHIBITOR NOS) [Concomitant]
  5. MEXITIL [Concomitant]
  6. PAMELOR [Concomitant]

REACTIONS (1)
  - CONVULSION [None]
